FAERS Safety Report 20626340 (Version 3)
Quarter: 2022Q2

REPORT INFORMATION
  Report Type: Spontaneous
  Country: FR (occurrence: FR)
  Receive Date: 20220323
  Receipt Date: 20220506
  Transmission Date: 20220720
  Serious: Yes (Other)
  Sender: FDA-Public Use
  Company Number: FR-002147023-NVSC2022FR051378

PATIENT
  Sex: Male

DRUGS (114)
  1. CELLCEPT [Suspect]
     Active Substance: MYCOPHENOLATE MOFETIL
     Indication: Prophylaxis against transplant rejection
     Dosage: UNK
     Route: 065
     Dates: start: 2010
  2. CELLCEPT [Suspect]
     Active Substance: MYCOPHENOLATE MOFETIL
     Indication: Heart transplant
     Dosage: UNK (500, 3 TABLETS MORNING AND EVENING)
     Route: 065
     Dates: start: 20100527
  3. CELLCEPT [Suspect]
     Active Substance: MYCOPHENOLATE MOFETIL
     Dosage: 1250 MG, BID
     Route: 065
  4. CELLCEPT [Suspect]
     Active Substance: MYCOPHENOLATE MOFETIL
     Dosage: 750 MG (MORNING AND EVENING)
     Route: 065
  5. CELLCEPT [Suspect]
     Active Substance: MYCOPHENOLATE MOFETIL
     Dosage: 750 MG, BID
     Route: 065
     Dates: start: 20191017
  6. CELLCEPT [Suspect]
     Active Substance: MYCOPHENOLATE MOFETIL
     Dosage: 1.5 MG (MORNING AND EVENING)
     Route: 065
  7. CELLCEPT [Suspect]
     Active Substance: MYCOPHENOLATE MOFETIL
     Dosage: 750 MG, BID
     Route: 065
     Dates: start: 20211216
  8. CELLCEPT [Suspect]
     Active Substance: MYCOPHENOLATE MOFETIL
     Dosage: 1250 MG (MORNING AND EVENING)
     Route: 065
  9. CELLCEPT [Suspect]
     Active Substance: MYCOPHENOLATE MOFETIL
     Dosage: 1250 MG (MORNING AND EVENING WITH AN AREA UNDER THE CURVE CONTROLLED AT 29.9)
     Route: 065
  10. CELLCEPT [Suspect]
     Active Substance: MYCOPHENOLATE MOFETIL
     Dosage: 1250 MG, BID
     Route: 065
     Dates: start: 20191002
  11. CELLCEPT [Suspect]
     Active Substance: MYCOPHENOLATE MOFETIL
     Dosage: 1250 MG, BID (AT 08 AND 20 HOURS)
     Route: 048
  12. NEORAL [Suspect]
     Active Substance: CYCLOSPORINE
     Indication: Heart transplant
     Dosage: 90 MG (MORNING AND EVENING)
     Route: 065
  13. NEORAL [Suspect]
     Active Substance: CYCLOSPORINE
     Indication: Prophylaxis against transplant rejection
     Route: 065
     Dates: start: 2010
  14. NEORAL [Suspect]
     Active Substance: CYCLOSPORINE
     Dosage: 70 MG (MORNING AND EVENING)
     Route: 065
  15. NEORAL [Suspect]
     Active Substance: CYCLOSPORINE
     Dosage: 90 MG, BID
     Route: 065
     Dates: start: 20191002
  16. NEORAL [Suspect]
     Active Substance: CYCLOSPORINE
     Dosage: 65 MG, BID (WITH A RESIDUAL RATE OF 50 WITH A TARGET BETWEEN 60 AND 80)
     Route: 065
     Dates: start: 20211216
  17. NEORAL [Suspect]
     Active Substance: CYCLOSPORINE
     Dosage: 65 MG (MORNING AND EVENING)
     Route: 065
  18. NEORAL [Suspect]
     Active Substance: CYCLOSPORINE
     Dosage: 90 MG (IN THE MORNING AND EVENING WITH A RATE OF 90 WITH A TARGET BETWEEN 80 AND 120)
     Route: 065
  19. NEORAL [Suspect]
     Active Substance: CYCLOSPORINE
     Dosage: 90 MG, BID
     Route: 065
     Dates: start: 20191017
  20. NEORAL [Suspect]
     Active Substance: CYCLOSPORINE
     Dosage: 200 MG, BID (AT 8 AND 20 HRS)
     Route: 048
     Dates: start: 20130704
  21. CERTICAN [Suspect]
     Active Substance: EVEROLIMUS
     Indication: Heart transplant
     Dosage: UNK
     Route: 048
     Dates: start: 2010
  22. CERTICAN [Suspect]
     Active Substance: EVEROLIMUS
     Indication: Prophylaxis against transplant rejection
     Dosage: 0.25 MG, BID
     Route: 065
     Dates: start: 20191017
  23. CERTICAN [Suspect]
     Active Substance: EVEROLIMUS
     Dosage: 0.5 MG, BID
     Route: 065
     Dates: start: 20191014
  24. CERTICAN [Suspect]
     Active Substance: EVEROLIMUS
     Dosage: 0.25 MG, BID (FOR ONE WEEK)
     Route: 065
     Dates: start: 20191007
  25. CERTICAN [Suspect]
     Active Substance: EVEROLIMUS
     Dosage: 0.8 MG, BID
     Route: 065
  26. CERTICAN [Suspect]
     Active Substance: EVEROLIMUS
     Dosage: 0.6 MG, BID (WITH A RESIDUAL RATE OF 6.2 WITH A TARGET BETWEEN 5 AND 8)
     Route: 065
     Dates: start: 20211216
  27. CERTICAN [Suspect]
     Active Substance: EVEROLIMUS
     Dosage: 0.6 MG, BID
     Route: 065
  28. CERTICAN [Suspect]
     Active Substance: EVEROLIMUS
     Dosage: 0.6 MG, BID
     Route: 065
  29. CERTICAN [Suspect]
     Active Substance: EVEROLIMUS
     Dosage: 0.25 MG, BID (MORNING AND EVENING FOR ONE WEEK)
     Route: 048
  30. BUMETANIDE [Concomitant]
     Active Substance: BUMETANIDE
     Indication: Product used for unknown indication
     Dosage: 5 MG, BID, TO BE CONTINUED ONE WEEK MORE
     Route: 065
     Dates: start: 20090812
  31. BUMETANIDE [Concomitant]
     Active Substance: BUMETANIDE
     Dosage: 5 MG, BID
     Route: 065
     Dates: start: 20090702
  32. ASCORBIC ACID\ERGOCALCIFEROL\RETINOL\TOCOPHEROL [Concomitant]
     Active Substance: ASCORBIC ACID\ERGOCALCIFEROL\RETINOL\TOCOPHEROL
     Indication: Product used for unknown indication
     Dosage: 2.5 MG, Q3MO (ONE AMPOULE)
     Route: 065
  33. FOLIC ACID [Concomitant]
     Active Substance: FOLIC ACID
     Indication: Product used for unknown indication
     Dosage: UNK (5, 1 TABLET MONDAYS, WEDNESDAYS, AND FRIDAYS)
     Route: 065
     Dates: start: 20100527
  34. FLUINDIONE [Concomitant]
     Active Substance: FLUINDIONE
     Indication: Product used for unknown indication
     Dosage: UNK (20, 1.25)
     Route: 065
     Dates: start: 20090608
  35. FLUINDIONE [Concomitant]
     Active Substance: FLUINDIONE
     Dosage: UNK (20, 1.25)
     Route: 065
     Dates: start: 20090618
  36. FLUINDIONE [Concomitant]
     Active Substance: FLUINDIONE
     Dosage: UNK, QD (1 TABLET)
     Route: 065
     Dates: start: 20090812
  37. FLUINDIONE [Concomitant]
     Active Substance: FLUINDIONE
     Dosage: UNK (1 1/4)
     Route: 065
     Dates: start: 20090702
  38. RILMENIDINE PHOSPHATE [Concomitant]
     Active Substance: RILMENIDINE PHOSPHATE
     Indication: Product used for unknown indication
     Dosage: UNK, QD (2 TABLETS)
     Route: 065
     Dates: start: 20100527
  39. RILMENIDINE PHOSPHATE [Concomitant]
     Active Substance: RILMENIDINE PHOSPHATE
     Dosage: UNK (2 TABLETS/DAY)
     Route: 065
     Dates: start: 20191002
  40. CALCIUM [Concomitant]
     Active Substance: CALCIUM
     Indication: Product used for unknown indication
     Dosage: UNK, QD (500, 1 TABLET)
     Route: 065
     Dates: start: 20100527
  41. ESOMEPRAZOLE [Concomitant]
     Active Substance: ESOMEPRAZOLE
     Indication: Product used for unknown indication
     Dosage: UNK UNK, QD, 40
     Route: 065
     Dates: start: 20090608
  42. ESOMEPRAZOLE [Concomitant]
     Active Substance: ESOMEPRAZOLE
     Dosage: UNK UNK, QD, 20
     Route: 065
     Dates: start: 20090618
  43. ESOMEPRAZOLE [Concomitant]
     Active Substance: ESOMEPRAZOLE
     Dosage: UNK UNK, QD, 40
     Route: 065
     Dates: start: 20090522
  44. VALGANCICLOVIR HYDROCHLORIDE [Concomitant]
     Active Substance: VALGANCICLOVIR HYDROCHLORIDE
     Indication: Product used for unknown indication
     Dosage: UNK, 450, 2 TABLETS/DAY
     Route: 065
     Dates: start: 20100527
  45. PRAVASTATIN [Concomitant]
     Active Substance: PRAVASTATIN
     Indication: Product used for unknown indication
     Dosage: 20 MG, QD
     Route: 065
     Dates: start: 20191002
  46. PRAVASTATIN [Concomitant]
     Active Substance: PRAVASTATIN
     Dosage: UNK, QD (20, 1 TABLET)
     Route: 065
     Dates: start: 20100527
  47. FUROSEMIDE [Concomitant]
     Active Substance: FUROSEMIDE
     Indication: Product used for unknown indication
     Dosage: 500 MG 1/2
     Route: 065
     Dates: start: 20090522
  48. FUROSEMIDE [Concomitant]
     Active Substance: FUROSEMIDE
     Dosage: 500, ONE FORTH TABLET/DAY
     Route: 065
     Dates: start: 20100527
  49. FUROSEMIDE [Concomitant]
     Active Substance: FUROSEMIDE
     Dosage: 500 MG, BID
     Route: 065
     Dates: start: 20090702
  50. FUROSEMIDE [Concomitant]
     Active Substance: FUROSEMIDE
     Dosage: 500 MG 1/2
     Route: 065
     Dates: start: 20090608
  51. FUROSEMIDE [Concomitant]
     Active Substance: FUROSEMIDE
     Dosage: 500 MG 1/2
     Route: 065
     Dates: start: 20090618
  52. FUROSEMIDE [Concomitant]
     Active Substance: FUROSEMIDE
     Dosage: 500 MG (1 TABLET MORNING AND MIDDAY)
     Route: 065
     Dates: start: 20090812
  53. PLAVIX [Concomitant]
     Active Substance: CLOPIDOGREL BISULFATE
     Indication: Product used for unknown indication
     Dosage: 75 MG, QD
     Route: 065
     Dates: start: 20090522
  54. PLAVIX [Concomitant]
     Active Substance: CLOPIDOGREL BISULFATE
     Dosage: UNK, BID
     Route: 065
     Dates: start: 20090702
  55. PLAVIX [Concomitant]
     Active Substance: CLOPIDOGREL BISULFATE
     Dosage: UNK, QD
     Route: 065
     Dates: start: 20090704
  56. PLAVIX [Concomitant]
     Active Substance: CLOPIDOGREL BISULFATE
     Dosage: 75 MG, QD
     Route: 065
     Dates: start: 20090608
  57. PLAVIX [Concomitant]
     Active Substance: CLOPIDOGREL BISULFATE
     Dosage: 75 MG, AT MIDDAY
     Route: 065
     Dates: start: 20090812
  58. PLAVIX [Concomitant]
     Active Substance: CLOPIDOGREL BISULFATE
     Dosage: 75 MG, BID
     Route: 065
     Dates: start: 20090618
  59. ALPRAZOLAM [Concomitant]
     Active Substance: ALPRAZOLAM
     Indication: Product used for unknown indication
     Dosage: UNK (0.25 , MORNING, NOON; HALF IN EVENING)
     Route: 065
     Dates: start: 20090522
  60. ALPRAZOLAM [Concomitant]
     Active Substance: ALPRAZOLAM
     Dosage: 0.25 MG, QD
     Route: 065
     Dates: start: 20090618
  61. POTASSIUM CHLORIDE [Concomitant]
     Active Substance: POTASSIUM CHLORIDE
     Indication: Product used for unknown indication
     Dosage: UNK (600, 2 IN THE MORNING, 2 AT NOON, 2 IN THE EVENING)
     Route: 065
     Dates: start: 20090702
  62. POTASSIUM CHLORIDE [Concomitant]
     Active Substance: POTASSIUM CHLORIDE
     Dosage: UNK (1 CAPSULE IN THE MORNING, MIDDAY AND EVENING)
     Route: 065
     Dates: start: 20090812
  63. AMLODIPINE [Concomitant]
     Active Substance: AMLODIPINE BESYLATE
     Indication: Product used for unknown indication
     Dosage: UNK, QD (10, 1 TABLET)
     Route: 065
     Dates: start: 20100527
  64. EPLERENONE [Concomitant]
     Active Substance: EPLERENONE
     Indication: Product used for unknown indication
     Dosage: 25 MG, QD
     Route: 065
     Dates: start: 20090522
  65. EPLERENONE [Concomitant]
     Active Substance: EPLERENONE
     Dosage: 25 MG, QD
     Route: 065
     Dates: start: 20090618
  66. EPLERENONE [Concomitant]
     Active Substance: EPLERENONE
     Dosage: 25 MG, QD
     Route: 065
     Dates: start: 20090702
  67. EPLERENONE [Concomitant]
     Active Substance: EPLERENONE
     Dosage: 25 MG, QD
     Route: 065
     Dates: start: 20090608
  68. OMACOR [Concomitant]
     Active Substance: OMEGA-3-ACID ETHYL ESTERS
     Indication: Product used for unknown indication
     Dosage: UNK (1 TABLET IN THE EVENING)
     Route: 065
     Dates: start: 20090522
  69. OMACOR [Concomitant]
     Active Substance: OMEGA-3-ACID ETHYL ESTERS
     Dosage: UNK (1 TABLET IN THE EVENING)
     Route: 065
     Dates: start: 20090702
  70. OMACOR [Concomitant]
     Active Substance: OMEGA-3-ACID ETHYL ESTERS
     Dosage: UNK (1 TABLET IN THE EVENING)
     Route: 065
     Dates: start: 20090618
  71. OMACOR [Concomitant]
     Active Substance: OMEGA-3-ACID ETHYL ESTERS
     Dosage: UNK (1 TABLET IN THE EVENING)
     Route: 065
     Dates: start: 20090608
  72. OMACOR [Concomitant]
     Active Substance: OMEGA-3-ACID ETHYL ESTERS
     Dosage: UNK (1 TABLET IN THE EVENING)
     Route: 065
     Dates: start: 20090812
  73. FLUDEX [Concomitant]
     Indication: Product used for unknown indication
     Dosage: UNK (1.5/DAY)
     Route: 065
     Dates: start: 20191002
  74. KARDEGIC [Concomitant]
     Active Substance: ASPIRIN DL-LYSINE
     Indication: Product used for unknown indication
     Dosage: UNK, QD, 160
     Route: 065
     Dates: start: 20090522
  75. KARDEGIC [Concomitant]
     Active Substance: ASPIRIN DL-LYSINE
     Dosage: 75 MG, AT MIDDAY
     Route: 065
     Dates: start: 20090812
  76. KARDEGIC [Concomitant]
     Active Substance: ASPIRIN DL-LYSINE
     Dosage: UNK, QD, 160
     Route: 065
     Dates: start: 20090618
  77. KARDEGIC [Concomitant]
     Active Substance: ASPIRIN DL-LYSINE
     Dosage: UNK, QD, 160
     Route: 065
     Dates: start: 20090702
  78. KARDEGIC [Concomitant]
     Active Substance: ASPIRIN DL-LYSINE
     Dosage: UNK, QD, 160
     Route: 065
     Dates: start: 20090608
  79. KARDEGIC [Concomitant]
     Active Substance: ASPIRIN DL-LYSINE
     Dosage: 75 MG, QD
     Route: 065
     Dates: start: 20191002
  80. KARDEGIC [Concomitant]
     Active Substance: ASPIRIN DL-LYSINE
     Dosage: UNK (75, 1 SACHET/DAY)
     Route: 065
     Dates: start: 20100527
  81. ZOPICLONE [Concomitant]
     Active Substance: ZOPICLONE
     Indication: Product used for unknown indication
     Dosage: UNK UNK, QD, 7.5
     Route: 065
     Dates: start: 20090618
  82. DOLIPRANE [Concomitant]
     Active Substance: ACETAMINOPHEN
     Indication: Product used for unknown indication
     Dosage: UNK (1000, MAXIMUM 3 TABLETS/DAY)
     Route: 065
     Dates: start: 20100527
  83. COZAAR [Concomitant]
     Active Substance: LOSARTAN POTASSIUM
     Indication: Product used for unknown indication
     Dosage: UNK, QD (100, 1 TABLET)
     Route: 065
     Dates: start: 20100527
  84. COZAAR [Concomitant]
     Active Substance: LOSARTAN POTASSIUM
     Dosage: 100 MG, QD
     Route: 065
     Dates: start: 20191002
  85. PREDNISONE [Concomitant]
     Active Substance: PREDNISONE
     Indication: Product used for unknown indication
     Dosage: 3 MG
     Route: 065
     Dates: start: 20191017
  86. PREDNISONE [Concomitant]
     Active Substance: PREDNISONE
     Dosage: 15 MG, QD
     Route: 065
     Dates: start: 20100527
  87. PREDNISONE [Concomitant]
     Active Substance: PREDNISONE
     Dosage: 3 MG
     Route: 065
     Dates: start: 20191002
  88. PREDNISONE [Concomitant]
     Active Substance: PREDNISONE
     Dosage: 3 MG (IN THE MORNING)
     Route: 065
  89. PROGRAF [Concomitant]
     Active Substance: TACROLIMUS
     Indication: Product used for unknown indication
     Dosage: 2 MG (AT 8H00 AND 20H00)
     Route: 065
     Dates: start: 20100527
  90. GLUCOPHAGE [Concomitant]
     Active Substance: METFORMIN HYDROCHLORIDE
     Indication: Product used for unknown indication
     Dosage: UNK,850, 3 TABLETS/DAY
     Route: 065
     Dates: start: 20100527
  91. CALCIUM [Concomitant]
     Active Substance: CALCIUM
     Indication: Product used for unknown indication
     Dosage: 500 MG, QD
     Route: 065
     Dates: start: 20191002
  92. LERCANIDIPINE [Concomitant]
     Active Substance: LERCANIDIPINE
     Indication: Product used for unknown indication
     Dosage: 10 MG, QD
     Route: 065
     Dates: start: 20191002
  93. PERINDOPRIL [Concomitant]
     Active Substance: PERINDOPRIL
     Indication: Product used for unknown indication
     Dosage: 10 MG, QD
     Route: 065
     Dates: start: 20090608
  94. PERINDOPRIL [Concomitant]
     Active Substance: PERINDOPRIL
     Dosage: 4 MG, BID (REPORTED AS EQUIVALENT TO 5 MG)
     Route: 065
     Dates: start: 20090522
  95. FERROUS SULFATE [Concomitant]
     Active Substance: FERROUS SULFATE
     Indication: Product used for unknown indication
     Dosage: UNK, QD, 80
     Route: 065
     Dates: start: 20090702
  96. BACTRIM [Concomitant]
     Active Substance: SULFAMETHOXAZOLE\TRIMETHOPRIM
     Indication: Product used for unknown indication
     Dosage: UNK , HALF TABLET ON MONDAYS, WEDNESDAYS, AND FRIDAYS
     Route: 065
     Dates: start: 20100527
  97. MAGNE B6 [Concomitant]
     Active Substance: MAGNESIUM\PYRIDOXINE
     Indication: Product used for unknown indication
     Dosage: UNK, 3 TABLETS/DAY
     Route: 065
     Dates: start: 20100527
  98. POTASSIUM CHLORIDE [Concomitant]
     Active Substance: POTASSIUM CHLORIDE
     Indication: Product used for unknown indication
     Dosage: 600 MG, QD
     Route: 065
     Dates: start: 20191002
  99. POTASSIUM CHLORIDE [Concomitant]
     Active Substance: POTASSIUM CHLORIDE
     Dosage: UNK, QD (600, 1 TABLET)
     Route: 065
     Dates: start: 20100527
  100. PERINDOPRIL [Concomitant]
     Active Substance: PERINDOPRIL
     Indication: Product used for unknown indication
     Dosage: 8 MG, QD
     Route: 065
     Dates: start: 20090618
  101. CARVEDILOL [Concomitant]
     Active Substance: CARVEDILOL
     Indication: Product used for unknown indication
     Dosage: UNK UNK, BID (6.25 AND 0.5 )
     Route: 065
     Dates: start: 20090608
  102. CARVEDILOL [Concomitant]
     Active Substance: CARVEDILOL
     Dosage: 12.5 MG (1 TABLET MORNING AND EVENING)
     Route: 065
     Dates: start: 20090812
  103. CARVEDILOL [Concomitant]
     Active Substance: CARVEDILOL
     Dosage: UNK UNK, BID (6.25, 0.5 )
     Route: 065
     Dates: start: 20090618
  104. ATARAX [Concomitant]
     Active Substance: HYDROXYZINE HYDROCHLORIDE
     Indication: Product used for unknown indication
     Dosage: 25 MG (IN THE EVENING)
     Route: 065
     Dates: start: 20090812
  105. BROMAZEPAM [Concomitant]
     Active Substance: BROMAZEPAM
     Indication: Product used for unknown indication
     Dosage: UNK (HALF TABLET IF NEEDED)
     Route: 065
     Dates: start: 20090702
  106. BISOPROLOL FUMARATE [Concomitant]
     Active Substance: BISOPROLOL FUMARATE
     Indication: Product used for unknown indication
     Dosage: UNK, QD, 3.75
     Route: 065
     Dates: start: 20090608
  107. BISOPROLOL FUMARATE [Concomitant]
     Active Substance: BISOPROLOL FUMARATE
     Dosage: UNK, QD, 3.75
     Route: 065
     Dates: start: 20090522
  108. ESCITALOPRAM OXALATE [Concomitant]
     Active Substance: ESCITALOPRAM OXALATE
     Indication: Product used for unknown indication
     Dosage: UNK (10, HALF/DAY)
     Route: 065
     Dates: start: 20090702
  109. TAHOR [Concomitant]
     Active Substance: ATORVASTATIN CALCIUM
     Indication: Product used for unknown indication
     Dosage: UNK UNK, QD, 40
     Route: 065
     Dates: start: 20090608
  110. TAHOR [Concomitant]
     Active Substance: ATORVASTATIN CALCIUM
     Dosage: UNK UNK, QD, 80
     Route: 065
     Dates: start: 20090522
  111. TAHOR [Concomitant]
     Active Substance: ATORVASTATIN CALCIUM
     Dosage: UNK, QD, 80
     Route: 065
     Dates: start: 20090618
  112. TAHOR [Concomitant]
     Active Substance: ATORVASTATIN CALCIUM
     Dosage: 40 MG (IN THE EVENING)
     Route: 065
     Dates: start: 20090812
  113. INIPOMP [Concomitant]
     Active Substance: PANTOPRAZOLE SODIUM
     Indication: Product used for unknown indication
     Dosage: 20 MG, QD
     Route: 065
     Dates: start: 20191002
  114. INIPOMP [Concomitant]
     Active Substance: PANTOPRAZOLE SODIUM
     Dosage: UNK (20, 1 TABLET IN THE EVENING)
     Route: 065
     Dates: start: 20100527

REACTIONS (14)
  - Diabetes mellitus [Unknown]
  - Hyperthyroidism [Unknown]
  - Blood creatinine increased [Unknown]
  - Restless legs syndrome [Not Recovered/Not Resolved]
  - Papilloma [Unknown]
  - Acne [Unknown]
  - Myalgia [Unknown]
  - Tooth disorder [Unknown]
  - Neoplasm malignant [Unknown]
  - Osteoarthritis [Unknown]
  - Drug intolerance [Unknown]
  - Rhabdomyolysis [Unknown]
  - Renal failure [Unknown]
  - Deficiency anaemia [Unknown]

NARRATIVE: CASE EVENT DATE: 20180101
